FAERS Safety Report 10654936 (Version 1)
Quarter: 2014Q4

REPORT INFORMATION
  Report Type: Spontaneous
  Country: None (occurrence: None)
  Receive Date: 20141215
  Receipt Date: 20141215
  Transmission Date: 20150529
  Serious: No
  Sender: FDA-Public Use
  Company Number: None

PATIENT
  Age: 46 Year
  Sex: Female
  Weight: 90.72 kg

DRUGS (1)
  1. SAPHRIS [Suspect]
     Active Substance: ASENAPINE MALEATE
     Indication: DEPRESSION
     Dosage: 1 PILL AT BEDTIME TAKEN UNDER THE TONGUE

REACTIONS (2)
  - Glycosylated haemoglobin increased [None]
  - Appetite disorder [None]

NARRATIVE: CASE EVENT DATE: 20140905
